FAERS Safety Report 5378511-4 (Version None)
Quarter: 2007Q3

REPORT INFORMATION
  Report Type: 
  Country: None (occurrence: None)
  Receive Date: 20070705
  Receipt Date: 20070626
  Transmission Date: 20080115
  Serious: Yes (Death)
  Sender: FDA-Public Use
  Company Number: DE-BAYER-200710738BVD

PATIENT
  Age: 58 Year
  Sex: Male
  Weight: 130 kg

DRUGS (13)
  1. CIPROFLOXACIN HCL [Suspect]
     Route: 048
     Dates: start: 20070329, end: 20070330
  2. HALDOL [Suspect]
     Route: 048
     Dates: start: 20070328, end: 20070330
  3. HALDOL [Suspect]
     Route: 048
     Dates: start: 20070323, end: 20070327
  4. SEROQUEL [Suspect]
     Route: 048
     Dates: start: 20070323, end: 20070330
  5. DIPIPERON [Suspect]
     Route: 048
     Dates: start: 20070323, end: 20070330
  6. CITALOPRAM HYDROBROMIDE [Concomitant]
     Route: 048
     Dates: start: 20070323, end: 20070330
  7. TAVOR [Concomitant]
     Route: 048
     Dates: start: 20070323, end: 20070330
  8. FLUNITRAZEPAM [Concomitant]
     Route: 048
     Dates: start: 20070323, end: 20070330
  9. SALOFALK [Concomitant]
     Route: 048
     Dates: start: 20070323, end: 20070330
  10. NOVALGIN [Concomitant]
     Route: 048
     Dates: start: 20070323, end: 20070330
  11. METOHEXAL [Concomitant]
     Route: 048
     Dates: start: 20070323, end: 20070330
  12. NEXIUM [Concomitant]
     Route: 048
     Dates: start: 20070323, end: 20070330
  13. FRAGMIN [Concomitant]
     Route: 058
     Dates: start: 20070323, end: 20070330

REACTIONS (1)
  - DEATH [None]
